FAERS Safety Report 21446471 (Version 3)
Quarter: 2022Q4

REPORT INFORMATION
  Report Type: Report from Study
  Country: US (occurrence: US)
  Receive Date: 20221012
  Receipt Date: 20221125
  Transmission Date: 20230112
  Serious: Yes (Death, Hospitalization, Other)
  Sender: FDA-Public Use
  Company Number: US-GILEAD-2022-0601072

PATIENT
  Age: 82 Year
  Sex: Female

DRUGS (17)
  1. AMBRISENTAN [Suspect]
     Active Substance: AMBRISENTAN
     Indication: Pulmonary arterial hypertension
     Dosage: 10 MG, QD
     Route: 065
     Dates: start: 20160322, end: 202211
  2. TAMIFLU [Concomitant]
     Active Substance: OSELTAMIVIR PHOSPHATE
  3. CEFDINIR [Concomitant]
     Active Substance: CEFDINIR
  4. ZITHROMAX [Concomitant]
     Active Substance: AZITHROMYCIN DIHYDRATE
  5. CHOLECALCIFEROL [Concomitant]
     Active Substance: CHOLECALCIFEROL
  6. SINGULAIR [Concomitant]
     Active Substance: MONTELUKAST SODIUM
  7. IRON [Concomitant]
     Active Substance: IRON
  8. ASPIRIN [Concomitant]
     Active Substance: ASPIRIN
  9. NITROGLYCERIN [Concomitant]
     Active Substance: NITROGLYCERIN
  10. QUINAPRIL [Concomitant]
     Active Substance: QUINAPRIL
  11. METOPROLOL [Concomitant]
     Active Substance: METOPROLOL
  12. FUROSEMIDE [Concomitant]
     Active Substance: FUROSEMIDE
  13. KLOR-CON M20 [Concomitant]
     Active Substance: POTASSIUM CHLORIDE
  14. MINERALS [Concomitant]
     Active Substance: MINERALS
  15. ALBUTEROL [Concomitant]
     Active Substance: ALBUTEROL
  16. DIGOXIN [Concomitant]
     Active Substance: DIGOXIN
  17. TYVASO [Concomitant]
     Active Substance: TREPROSTINIL

REACTIONS (4)
  - Death [Fatal]
  - Pericardial effusion [Unknown]
  - Confusional state [Unknown]
  - Illness [Unknown]

NARRATIVE: CASE EVENT DATE: 20221118
